FAERS Safety Report 10040423 (Version 1)
Quarter: 2014Q1

REPORT INFORMATION
  Report Type: Spontaneous
  Country: US (occurrence: US)
  Receive Date: 20140327
  Receipt Date: 20140327
  Transmission Date: 20141002
  Serious: No
  Sender: FDA-Public Use
  Company Number: US-BIOGENIDEC-2014BI028175

PATIENT
  Age: 37 Year
  Sex: Female

DRUGS (1)
  1. TYSABRI [Suspect]
     Indication: MULTIPLE SCLEROSIS
     Route: 042
     Dates: start: 20080121

REACTIONS (9)
  - Dysphagia [Recovered/Resolved]
  - Temperature intolerance [Recovered/Resolved]
  - Musculoskeletal disorder [Recovered/Resolved]
  - Hypoaesthesia [Recovered/Resolved]
  - Cognitive disorder [Recovered/Resolved]
  - Tonsillectomy [Recovered/Resolved]
  - Paraesthesia [Recovered/Resolved]
  - Pain in extremity [Recovered/Resolved]
  - Sinusitis [Recovered/Resolved]
